FAERS Safety Report 6220900-X (Version None)
Quarter: 2009Q2

REPORT INFORMATION
  Report Type: 
  Country: None (occurrence: None)
  Receive Date: 20090610
  Receipt Date: 20090602
  Transmission Date: 20091009
  Serious: Yes (Other)
  Sender: FDA-Public Use
  Company Number: IT-PFIZER INC-2009222421

PATIENT
  Age: 37 Year

DRUGS (3)
  1. NELFINAVIR MESILATE [Suspect]
  2. LAMIVUDINE [Suspect]
  3. DIDANOSINE [Suspect]

REACTIONS (1)
  - DERMATITIS BULLOUS [None]
